FAERS Safety Report 4948404-2 (Version None)
Quarter: 2006Q1

REPORT INFORMATION
  Report Type: 
  Country: None (occurrence: None)
  Receive Date: 20060320
  Receipt Date: 20060317
  Transmission Date: 20060701
  Serious: Yes (Death)
  Sender: FDA-Public Use
  Company Number: CO-BOEHRINGER INGELHEIM PHARMACEUTICALS, INC.-2006-BP-03062CL

PATIENT
  Sex: Male

DRUGS (1)
  1. TIOTROPIUM INHALATION POWDER [Suspect]

REACTIONS (1)
  - CORONARY ARTERY DISEASE [None]
